FAERS Safety Report 7312681-3 (Version None)
Quarter: 2011Q1

REPORT INFORMATION
  Report Type: 
  Country: None (occurrence: None)
  Receive Date: 20110224
  Receipt Date: 20101110
  Transmission Date: 20110831
  Serious: No
  Sender: FDA-Public Use
  Company Number: US-ASTRAZENECA-2010SE53486

PATIENT
  Sex: Male

DRUGS (2)
  1. VIMOVO [Suspect]
     Route: 048
  2. COUMADIN [Concomitant]

REACTIONS (2)
  - ABDOMINAL DISCOMFORT [None]
  - DRUG INTOLERANCE [None]
